FAERS Safety Report 12274759 (Version 1)
Quarter: 2016Q2

REPORT INFORMATION
  Report Type: Spontaneous
  Country: US (occurrence: US)
  Receive Date: 20160415
  Receipt Date: 20160415
  Transmission Date: 20160815
  Serious: No
  Sender: FDA-Public Use
  Company Number: US-ALLERGAN-1509144US

PATIENT
  Sex: Female
  Weight: 140 kg

DRUGS (2)
  1. LATISSE [Suspect]
     Active Substance: BIMATOPROST
     Dosage: UNK, QD
     Dates: start: 2013
  2. LATISSE [Suspect]
     Active Substance: BIMATOPROST
     Indication: GROWTH OF EYELASHES
     Dosage: UNK, QD
     Route: 003

REACTIONS (5)
  - Drug administered at inappropriate site [Unknown]
  - Product quality issue [Unknown]
  - Eye irritation [Unknown]
  - Drug ineffective [Unknown]
  - Wrong technique in product usage process [Unknown]
